FAERS Safety Report 10208597 (Version 2)
Quarter: 2014Q2

REPORT INFORMATION
  Report Type: Spontaneous
  Country: US (occurrence: US)
  Receive Date: 20140530
  Receipt Date: 20140530
  Transmission Date: 20141212
  Serious: No
  Sender: FDA-Public Use
  Company Number: US-PURDUE-USA-2013-0103058

PATIENT
  Age: 71 Year
  Sex: Male
  Weight: 96.15 kg

DRUGS (2)
  1. MORPHINE SULFATE EXTENDED-RELEASE TABLETS (RHODES 74-862) [Suspect]
     Indication: PAIN
     Dosage: 15 MG, HS
     Route: 048
     Dates: start: 201304
  2. MORPHINE SULFATE EXTENDED-RELEASE TABLETS (RHODES 74-862) [Suspect]
     Indication: INSOMNIA

REACTIONS (5)
  - Hangover [Not Recovered/Not Resolved]
  - Drug effect increased [Not Recovered/Not Resolved]
  - Somnolence [Not Recovered/Not Resolved]
  - Headache [Not Recovered/Not Resolved]
  - Inadequate analgesia [Not Recovered/Not Resolved]
